FAERS Safety Report 13722441 (Version 1)
Quarter: 2017Q3

REPORT INFORMATION
  Report Type: Spontaneous
  Country: US (occurrence: US)
  Receive Date: 20170706
  Receipt Date: 20170706
  Transmission Date: 20171127
  Serious: Yes (Other)
  Sender: FDA-Public Use
  Company Number: US-BAYER-2017-129477

PATIENT
  Age: 81 Year
  Sex: Female
  Weight: 69.98 kg

DRUGS (3)
  1. BAYER LOW DOSE [Suspect]
     Active Substance: ASPIRIN
     Indication: GENERAL PHYSICAL HEALTH DETERIORATION
     Dosage: UNK
     Route: 048
     Dates: end: 20170705
  2. CURCUMIN [Concomitant]
     Active Substance: CURCUMIN
  3. CENTRUM SELECT 50+ [Concomitant]
     Active Substance: VITAMINS

REACTIONS (2)
  - Rectal haemorrhage [Not Recovered/Not Resolved]
  - Product use in unapproved indication [Unknown]

NARRATIVE: CASE EVENT DATE: 20170705
